FAERS Safety Report 11913095 (Version 2)
Quarter: 2016Q1

REPORT INFORMATION
  Report Type: Spontaneous
  Country: CN (occurrence: CN)
  Receive Date: 20160113
  Receipt Date: 20160115
  Transmission Date: 20160526
  Serious: Yes (Death, Hospitalization)
  Sender: FDA-Public Use
  Company Number: CN-SA-2016SA004453

PATIENT
  Age: 49 Year
  Sex: Female
  Weight: 55 kg

DRUGS (1)
  1. CEREZYME [Suspect]
     Active Substance: IMIGLUCERASE
     Indication: GAUCHER^S DISEASE TYPE I
     Route: 041
     Dates: start: 2009, end: 20151216

REACTIONS (7)
  - Nasopharyngitis [Unknown]
  - Dyspnoea [Fatal]
  - Occult blood positive [Unknown]
  - Haemoptysis [Unknown]
  - Cardiopulmonary failure [Fatal]
  - Computerised tomogram abnormal [Unknown]
  - Cough [Unknown]

NARRATIVE: CASE EVENT DATE: 20151021
